FAERS Safety Report 4808539-1 (Version None)
Quarter: 2005Q4

REPORT INFORMATION
  Report Type: 
  Country: None (occurrence: None)
  Receive Date: 20051021
  Receipt Date: 20020125
  Transmission Date: 20060501
  Serious: No
  Sender: FDA-Public Use
  Company Number: US_020181163

PATIENT
  Age: 42 Year
  Sex: Female

DRUGS (2)
  1. OLANZAPINE [Suspect]
     Indication: DELIRIUM
     Dosage: 15 MG/DAY
     Route: 048
     Dates: start: 20010905, end: 20020101
  2. ISOTRETINOIN [Concomitant]

REACTIONS (3)
  - ACNE [None]
  - DRUG INTERACTION [None]
  - NEUTROPENIA [None]
